FAERS Safety Report 6987373-0 (Version None)
Quarter: 2010Q3

REPORT INFORMATION
  Report Type: 
  Country: None (occurrence: None)
  Receive Date: 20100913
  Receipt Date: 20100827
  Transmission Date: 20110219
  Serious: Yes (Death, Other)
  Sender: FDA-Public Use
  Company Number: 2010-3035

PATIENT
  Age: 64 Year
  Sex: Male
  Weight: 106 kg

DRUGS (1)
  1. APO-GO PFS (APO-GO) (APOMORPHINE HYDROCHLORIDE) (APOMORPHINE HYDROCHLO [Suspect]
     Indication: PARKINSON'S DISEASE
     Dosage: CONTINUOUS INJECTION AT 5MG/H (CONTINUOUS INJECTION AT 5MG/H),
     Dates: start: 20060726

REACTIONS (2)
  - ACUTE PSYCHOSIS [None]
  - AGGRESSION [None]
